FAERS Safety Report 18343711 (Version 1)
Quarter: 2020Q4

REPORT INFORMATION
  Report Type: Spontaneous
  Country: ID (occurrence: ID)
  Receive Date: 20201005
  Receipt Date: 20201005
  Transmission Date: 20210114
  Serious: Yes (Congenital Anomaly, Other)
  Sender: FDA-Public Use
  Company Number: ID-STRIDES ARCOLAB LIMITED-2020SP011920

PATIENT
  Sex: Female

DRUGS (3)
  1. LAMIVUDINE. [Suspect]
     Active Substance: LAMIVUDINE
     Indication: PRODUCT USED FOR UNKNOWN INDICATION
     Dosage: UNK
     Route: 064
  2. EFAVIRENZ. [Suspect]
     Active Substance: EFAVIRENZ
     Indication: PRODUCT USED FOR UNKNOWN INDICATION
     Dosage: UNK
     Route: 064
  3. TENOFOVIR DISOPROXIL FUMARATE. [Suspect]
     Active Substance: TENOFOVIR DISOPROXIL FUMARATE
     Indication: PRODUCT USED FOR UNKNOWN INDICATION
     Dosage: UNK
     Route: 064

REACTIONS (2)
  - Cleft lip and palate [Unknown]
  - Foetal exposure during pregnancy [Unknown]
